FAERS Safety Report 8183398-0 (Version None)
Quarter: 2012Q1

REPORT INFORMATION
  Report Type: 
  Country: None (occurrence: None)
  Receive Date: 20120130
  Receipt Date: 20111129
  Transmission Date: 20120608
  Serious: Yes (Hospitalization, Other)
  Sender: FDA-Public Use
  Company Number: 042834

PATIENT
  Sex: Male
  Weight: 75 kg

DRUGS (3)
  1. DILANTIN [Suspect]
     Dosage: ()
  2. KEPPRA [Suspect]
     Indication: GRAND MAL CONVULSION
     Dosage: (4000 MG, 4000MG/DAY), (4000 MG, 4000 MG PER DAY)
     Dates: end: 20111001
  3. KEPPRA [Suspect]
     Indication: GRAND MAL CONVULSION
     Dosage: (4000 MG, 4000MG/DAY), (4000 MG, 4000 MG PER DAY)
     Dates: start: 20110101

REACTIONS (1)
  - CONVULSION [None]
